FAERS Safety Report 8207050-8 (Version None)
Quarter: 2012Q1

REPORT INFORMATION
  Report Type: 
  Country: None (occurrence: None)
  Receive Date: 20120314
  Receipt Date: 20120306
  Transmission Date: 20120608
  Serious: Yes (Death)
  Sender: FDA-Public Use
  Company Number: DE-UCBSA-047491

PATIENT
  Age: 51 Year
  Sex: Female
  Weight: 60 kg

DRUGS (10)
  1. TORSEMIDE [Concomitant]
     Route: 048
  2. KEPPRA [Suspect]
     Indication: EPILEPSY
     Dosage: IV/PO
     Dates: start: 20111128, end: 20111205
  3. JENASPIRON [Concomitant]
     Indication: HEPATIC CIRRHOSIS
     Route: 048
  4. CIPROFLOXACIN [Concomitant]
     Indication: INFARCTION
     Route: 048
     Dates: start: 20111125, end: 20110101
  5. ALLOPURINOL [Concomitant]
     Indication: GOUT
     Route: 048
  6. JENASPIRON [Concomitant]
     Indication: HEPATORENAL SYNDROME
     Route: 048
  7. ACETYLCYSTEINE [Concomitant]
     Route: 048
  8. JENASPIRON [Concomitant]
     Indication: OEDEMA
     Route: 048
  9. CIPROFLOXACIN [Concomitant]
     Route: 048
  10. PANTOPRAZOLE [Concomitant]
     Indication: VARICES OESOPHAGEAL
     Route: 048

REACTIONS (1)
  - PANCYTOPENIA [None]
